FAERS Safety Report 23769124 (Version 1)
Quarter: 2024Q2

REPORT INFORMATION
  Report Type: Spontaneous
  Country: US (occurrence: US)
  Receive Date: 20240422
  Receipt Date: 20240422
  Transmission Date: 20240716
  Serious: No
  Sender: FDA-Public Use
  Company Number: US-GSK-US2024047277

PATIENT
  Sex: Male

DRUGS (1)
  1. VENTOLIN HFA [Suspect]
     Active Substance: ALBUTEROL SULFATE
     Indication: Asthma
     Dosage: UNK,  90 MCG INH 18 GM ONCE OR TWICE DAILY AS NEEDED

REACTIONS (2)
  - Incorrect dose administered [Unknown]
  - Product dose omission issue [Unknown]
